FAERS Safety Report 6636921-9 (Version None)
Quarter: 2010Q1

REPORT INFORMATION
  Report Type: 
  Country: None (occurrence: None)
  Receive Date: 20100316
  Receipt Date: 20100305
  Transmission Date: 20100710
  Serious: Yes (Death)
  Sender: FDA-Public Use
  Company Number: FR-BRISTOL-MYERS SQUIBB COMPANY-15003601

PATIENT
  Age: 44 Year
  Sex: Male

DRUGS (4)
  1. ABILIFY [Suspect]
     Indication: MENTAL DISORDER
  2. STABLON [Concomitant]
  3. SERESTA [Concomitant]
     Dosage: 1 DF : 4 TABLETS DAILY
  4. KLIPAL [Concomitant]

REACTIONS (1)
  - CARDIAC ARREST [None]
